FAERS Safety Report 21667947 (Version 1)
Quarter: 2022Q4

REPORT INFORMATION
  Report Type: Spontaneous
  Country: US (occurrence: None)
  Receive Date: 20221130
  Receipt Date: 20221130
  Transmission Date: 20230112
  Serious: Yes (Hospitalization, Other)
  Sender: FDA-Public Use
  Company Number: None

PATIENT
  Age: 73 Year
  Sex: Male
  Weight: 80.37 kg

DRUGS (5)
  1. FLUPHENAZINE [Suspect]
     Active Substance: FLUPHENAZINE
     Indication: Schizoaffective disorder
     Dosage: FREQUENCY : TWICE A DAY;?
     Route: 048
     Dates: start: 20220711, end: 20220729
  2. DIVALPROEX SODIUM [Concomitant]
     Active Substance: DIVALPROEX SODIUM
     Dates: start: 20220524, end: 20221031
  3. AMANTADINE [Suspect]
     Active Substance: AMANTADINE
  4. CLOZAPINE [Suspect]
     Active Substance: CLOZAPINE
  5. LORAZEPAM [Suspect]
     Active Substance: LORAZEPAM

REACTIONS (19)
  - Parkinsonism [None]
  - Drug ineffective [None]
  - Head injury [None]
  - Lumbar vertebral fracture [None]
  - Lumbar vertebral fracture [None]
  - Gait disturbance [None]
  - Asthenia [None]
  - Gait disturbance [None]
  - Weight bearing difficulty [None]
  - Somnolence [None]
  - Restlessness [None]
  - Increased viscosity of upper respiratory secretion [None]
  - Aggression [None]
  - Psychotic disorder [None]
  - Dementia [None]
  - Delirium [None]
  - Fall [None]
  - Extrapyramidal disorder [None]
  - Condition aggravated [None]

NARRATIVE: CASE EVENT DATE: 20220725
